FAERS Safety Report 5969064-8 (Version None)
Quarter: 2008Q4

REPORT INFORMATION
  Report Type: 
  Country: None (occurrence: None)
  Receive Date: 20081125
  Receipt Date: 20081125
  Transmission Date: 20090506
  Serious: No
  Sender: FDA-Public Use
  Company Number: None

PATIENT
  Age: 85 Year
  Sex: Female
  Weight: 68.0396 kg

DRUGS (1)
  1. TIMOLOL FGS 0.25% FALCON PHARMACEUTICALS [Suspect]
     Indication: INTRAOCULAR PRESSURE TEST ABNORMAL
     Dosage: 1 DROP ONCE A DAY OPHTHALMIC
     Route: 047
     Dates: start: 20081024, end: 20081123

REACTIONS (3)
  - MEDICATION ERROR [None]
  - MUSCLE SPASMS [None]
  - PRODUCT QUALITY ISSUE [None]
